FAERS Safety Report 18549502 (Version 2)
Quarter: 2020Q4

REPORT INFORMATION
  Report Type: Report from Study
  Country: DE (occurrence: DE)
  Receive Date: 20201126
  Receipt Date: 20201203
  Transmission Date: 20210114
  Serious: No
  Sender: FDA-Public Use
  Company Number: DE-BAUSCH-BL-2020-034528

PATIENT
  Age: 50 Year
  Sex: Female
  Weight: 90 kg

DRUGS (1)
  1. KYNTHEUM (BRODALUMAB) [Suspect]
     Active Substance: BRODALUMAB
     Indication: PSORIASIS
     Dosage: 210 MG/1.5 ML
     Route: 058
     Dates: start: 20201103

REACTIONS (2)
  - Back pain [Recovered/Resolved]
  - Diarrhoea [Recovered/Resolved]

NARRATIVE: CASE EVENT DATE: 20201103
